FAERS Safety Report 4401039-2 (Version None)
Quarter: 2004Q3

REPORT INFORMATION
  Report Type: 
  Country: None (occurrence: None)
  Receive Date: 20040907
  Receipt Date: 20031002
  Transmission Date: 20050211
  Serious: No
  Sender: FDA-Public Use
  Company Number: US-BRISTOL-MYERS SQUIBB COMPANY-12400024

PATIENT
  Age: 72 Year
  Sex: Female
  Weight: 132 kg

DRUGS (7)
  1. COUMADIN [Suspect]
     Indication: HEART RATE IRREGULAR
     Dosage: 5 MG ALTERNATING WITH 2.5 MG EVERY OTHER DAY
     Route: 048
     Dates: start: 20030927
  2. COUMADIN [Suspect]
     Indication: ATRIAL FIBRILLATION
     Dosage: 5 MG ALTERNATING WITH 2.5 MG EVERY OTHER DAY
     Route: 048
     Dates: start: 20030927
  3. COUMADIN [Suspect]
     Indication: CARDIAC DISORDER
     Dosage: 5 MG ALTERNATING WITH 2.5 MG EVERY OTHER DAY
     Route: 048
     Dates: start: 20030927
  4. AMIODARONE HCL [Concomitant]
     Dates: start: 20030927
  5. LASIX [Concomitant]
  6. POTASSIUM [Concomitant]
  7. LANOXIN [Concomitant]

REACTIONS (4)
  - ARTHRALGIA [None]
  - HYPERAESTHESIA [None]
  - PRURITUS [None]
  - SWOLLEN TONGUE [None]
